FAERS Safety Report 8789621 (Version 1)
Quarter: 2012Q4

REPORT INFORMATION
  Report Type: Spontaneous
  Country: US (occurrence: None)
  Receive Date: 20120910
  Receipt Date: 20120910
  Transmission Date: 20130627
  Serious: Yes (Life-Threatening, Other)
  Sender: FDA-Public Use
  Company Number: None

PATIENT
  Sex: Male

DRUGS (1)
  1. LEVETIRACETAM [Suspect]
     Indication: SEIZURES
     Route: 048
     Dates: start: 20110728

REACTIONS (8)
  - Hallucination [None]
  - Abnormal behaviour [None]
  - Convulsion [None]
  - Confusional state [None]
  - Suicide attempt [None]
  - Memory impairment [None]
  - Headache [None]
  - Suicidal ideation [None]
